FAERS Safety Report 6428869-X (Version None)
Quarter: 2009Q4

REPORT INFORMATION
  Report Type: 
  Country: None (occurrence: None)
  Receive Date: 20091102
  Receipt Date: 20091020
  Transmission Date: 20100525
  Serious: Yes (Hospitalization)
  Sender: FDA-Public Use
  Company Number: PAR_03235_2009

PATIENT
  Age: 55 Year
  Sex: Female
  Weight: 103.8737 kg

DRUGS (18)
  1. HYDRALAZINE HCL [Suspect]
     Indication: ACCIDENTAL EXPOSURE
     Dosage: DF, 1X ORAL
     Route: 048
     Dates: start: 20081121, end: 20081121
  2. BLINDED, SCH530348/PLACEBO (INVESTIGATIONAL DRUG) 2.5 MG [Suspect]
     Indication: ACUTE CORONARY SYNDROME
     Dosage: 2.5 MG QD ORAL
     Route: 048
     Dates: start: 20080806
  3. BLINDED, SCH530348/PLACEBO(INVESTIGATIONAL DRUG) 40 MG [Suspect]
     Indication: ACUTE CORONARY SYNDROME
     Dosage: 40 MG 1X ORAL
     Route: 048
     Dates: start: 20080805, end: 20080805
  4. CARVEDILOL [Suspect]
     Indication: ACCIDENTAL EXPOSURE
     Dosage: DF, 1X ORAL
     Route: 048
     Dates: start: 20081121, end: 20081121
  5. IRBESARTAN [Suspect]
     Indication: ACCIDENTAL EXPOSURE
     Dosage: DF, 1X ORAL
     Route: 048
     Dates: start: 20081121, end: 20081121
  6. BUMETANIDE [Concomitant]
  7. ESTROGEN [Concomitant]
  8. METANX [Concomitant]
  9. AMITIZA [Concomitant]
  10. JANUVIA [Concomitant]
  11. METOPROLOL TARTRATE [Concomitant]
  12. NEXIUM [Concomitant]
  13. SIMVASTATIN [Concomitant]
  14. CLOPIDOGREL [Concomitant]
  15. ASPIRIN [Concomitant]
  16. FUROSEMIDE [Concomitant]
  17. POTASSIUM CHLORIDE [Concomitant]
  18. WELLBUTRIN [Concomitant]

REACTIONS (3)
  - ACCIDENTAL EXPOSURE [None]
  - HYPOTENSION [None]
  - LETHARGY [None]
